FAERS Safety Report 4522635-8 (Version None)
Quarter: 2004Q4

REPORT INFORMATION
  Report Type: 
  Country: None (occurrence: None)
  Receive Date: 20041207
  Receipt Date: 20041125
  Transmission Date: 20050328
  Serious: Yes (Hospitalization)
  Sender: FDA-Public Use
  Company Number: EM2004-0587

PATIENT
  Age: 72 Year
  Sex: Male
  Weight: 86.5 kg

DRUGS (4)
  1. PROLEUKIN [Suspect]
     Indication: RENAL CELL CARCINOMA STAGE UNSPECIFIED
     Dosage: SEE IMAGE
     Route: 058
     Dates: end: 20041112
  2. PROLEUKIN [Suspect]
     Indication: RENAL CELL CARCINOMA STAGE UNSPECIFIED
     Dosage: SEE IMAGE
     Route: 058
     Dates: start: 20041020
  3. INTERFERON ALFA (INTERFERON ALFA) [Suspect]
     Indication: RENAL CELL CARCINOMA STAGE UNSPECIFIED
     Dosage: 18 MIU, SUBCUTAN.
     Route: 058
     Dates: start: 20041018, end: 20041115
  4. FLUOROURACIL [Concomitant]

REACTIONS (6)
  - BLOOD CREATININE INCREASED [None]
  - DEHYDRATION [None]
  - DIARRHOEA [None]
  - HAEMATEMESIS [None]
  - MARKEDLY REDUCED DIETARY INTAKE [None]
  - NAUSEA [None]
